FAERS Safety Report 21382335 (Version 2)
Quarter: 2022Q4

REPORT INFORMATION
  Report Type: Other
  Country: US (occurrence: None)
  Receive Date: 20220927
  Receipt Date: 20221009
  Transmission Date: 20230113
  Serious: Yes (Death)
  Sender: FDA-Public Use
  Company Number: US-ROCHE-3186697

PATIENT
  Age: 82 Year
  Sex: Female

DRUGS (1)
  1. ESBRIET [Suspect]
     Active Substance: PIRFENIDONE
     Indication: Interstitial lung disease
     Dosage: TAKE 1 CAPSULE BY MOUTH 3 TIMES A DAILY FOR 7 DAYS THEN 2 CAPSULES 3 TIMES DAILY FOR 7 DAYS THEN 3 C
     Route: 048

REACTIONS (3)
  - Interstitial lung disease [Fatal]
  - Off label use [Unknown]
  - Aspiration [Fatal]
